FAERS Safety Report 10216048 (Version 2)
Quarter: 2014Q3

REPORT INFORMATION
  Report Type: Spontaneous
  Country: US (occurrence: None)
  Receive Date: 20140602
  Receipt Date: 20140714
  Transmission Date: 20150326
  Serious: Yes (Other)
  Sender: FDA-Public Use
  Company Number: 2014-US-006474

PATIENT
  Age: 49 Year
  Sex: Male
  Weight: 86.2 kg

DRUGS (1)
  1. XYREM [Suspect]
     Active Substance: SODIUM OXYBATE
     Indication: NARCOLEPSY
     Route: 048
     Dates: start: 201211

REACTIONS (3)
  - Back pain [None]
  - Thrombosis [None]
  - Victim of crime [None]
